FAERS Safety Report 8208965-7 (Version None)
Quarter: 2012Q1

REPORT INFORMATION
  Report Type: 
  Country: None (occurrence: None)
  Receive Date: 20120314
  Receipt Date: 20120313
  Transmission Date: 20120608
  Serious: Yes (Other)
  Sender: FDA-Public Use
  Company Number: JP-PFIZER INC-2012023853

PATIENT
  Age: 39 Year
  Sex: Male

DRUGS (1)
  1. LYRICA [Suspect]
     Dosage: 75 MG DAILY
     Route: 048
     Dates: start: 20120123, end: 20120101

REACTIONS (2)
  - DIZZINESS [None]
  - EYE DISORDER [None]
